FAERS Safety Report 18262974 (Version 2)
Quarter: 2020Q4

REPORT INFORMATION
  Report Type: Report from Study
  Country: US (occurrence: US)
  Receive Date: 20200914
  Receipt Date: 20201012
  Transmission Date: 20210113
  Serious: Yes (Hospitalization, Other)
  Sender: FDA-Public Use
  Company Number: US-GILEAD-2020-0488643

PATIENT
  Age: 55 Year
  Sex: Male
  Weight: 155.1 kg

DRUGS (4)
  1. UPTRAVI [Concomitant]
     Active Substance: SELEXIPAG
     Dosage: 1600 MG, BID
  2. AMBRISENTAN [Suspect]
     Active Substance: AMBRISENTAN
     Indication: PULMONARY ARTERIAL HYPERTENSION
     Dosage: 10 MG, QD
     Route: 065
     Dates: start: 20191203
  3. ADCIRCA [Concomitant]
     Active Substance: TADALAFIL
  4. ELIQUIS [Concomitant]
     Active Substance: APIXABAN

REACTIONS (2)
  - Pneumonia viral [Unknown]
  - Hypoxia [Unknown]
